FAERS Safety Report 8099863-0 (Version None)
Quarter: 2012Q1

REPORT INFORMATION
  Report Type: 
  Country: None (occurrence: None)
  Receive Date: 20120129
  Receipt Date: 20111011
  Transmission Date: 20120608
  Serious: No
  Sender: FDA-Public Use
  Company Number: US-ABBOTT-11P-163-0862811-00

PATIENT
  Sex: Female
  Weight: 149.82 kg

DRUGS (3)
  1. MULITPLE UNLISTED MEDICATIONS [Concomitant]
     Indication: PRODUCT USED FOR UNKNOWN INDICATION
  2. DILTIAZEM HCL [Concomitant]
     Indication: HYPERTENSION
  3. HUMIRA [Suspect]
     Indication: RHEUMATOID ARTHRITIS
     Route: 058

REACTIONS (5)
  - HYPERTENSION [None]
  - CYSTITIS [None]
  - WHITE BLOOD CELL COUNT INCREASED [None]
  - FATIGUE [None]
  - BLOOD CHOLESTEROL INCREASED [None]
